FAERS Safety Report 21730723 (Version 2)
Quarter: 2023Q2

REPORT INFORMATION
  Report Type: Report from Study
  Country: CA (occurrence: CA)
  Receive Date: 20221215
  Receipt Date: 20230605
  Transmission Date: 20230722
  Serious: Yes (Other)
  Sender: FDA-Public Use
  Company Number: CA-AMGEN-CANSP2022202280

PATIENT
  Age: 57 Year
  Sex: Female

DRUGS (1)
  1. XGEVA [Suspect]
     Active Substance: DENOSUMAB
     Indication: Bone cancer
     Dosage: UNK, Q4WK
     Route: 065
     Dates: start: 20201028

REACTIONS (4)
  - Oral surgery [Unknown]
  - Bone abscess [Unknown]
  - Tooth fracture [Unknown]
  - Off label use [Unknown]

NARRATIVE: CASE EVENT DATE: 20201028
